FAERS Safety Report 4866993-3 (Version None)
Quarter: 2005Q4

REPORT INFORMATION
  Report Type: 
  Country: None (occurrence: None)
  Receive Date: 20051227
  Receipt Date: 20051121
  Transmission Date: 20060501
  Serious: Yes (Hospitalization)
  Sender: FDA-Public Use
  Company Number: GB-MERCK-0511GBR00121

PATIENT
  Age: 43 Year
  Sex: Female

DRUGS (1)
  1. FOSAMAX [Suspect]
     Route: 048
     Dates: start: 20050401, end: 20050101

REACTIONS (10)
  - APHONIA [None]
  - BURN OESOPHAGEAL [None]
  - CHOKING [None]
  - COUGH [None]
  - DYSPHAGIA [None]
  - DYSPNOEA [None]
  - GENERAL PHYSICAL HEALTH DETERIORATION [None]
  - HAEMOPTYSIS [None]
  - PAIN [None]
  - PANIC ATTACK [None]
